FAERS Safety Report 7073353-6 (Version None)
Quarter: 2010Q4

REPORT INFORMATION
  Report Type: 
  Country: None (occurrence: None)
  Receive Date: 20101028
  Receipt Date: 20101028
  Transmission Date: 20110411
  Serious: No
  Sender: FDA-Public Use
  Company Number: None

PATIENT

DRUGS (1)
  1. FOCALIN XR [Suspect]
     Dosage: 10MG ONCE DAILY PO
     Route: 048
     Dates: start: 20100608, end: 20100613

REACTIONS (3)
  - INCREASED APPETITE [None]
  - PRODUCT FORMULATION ISSUE [None]
  - PSYCHOMOTOR HYPERACTIVITY [None]
